FAERS Safety Report 11558970 (Version 2)
Quarter: 2015Q4

REPORT INFORMATION
  Report Type: Spontaneous
  Country: NL (occurrence: NL)
  Receive Date: 20150928
  Receipt Date: 20151008
  Transmission Date: 20160304
  Serious: Yes (Hospitalization)
  Sender: FDA-Public Use
  Company Number: NL-TOLMAR, INC.-2015NL008624

PATIENT
  Age: 77 Year
  Sex: Male

DRUGS (3)
  1. ELIGARD [Suspect]
     Active Substance: LEUPROLIDE ACETATE
     Indication: PROSTATE CANCER
     Dosage: 45 MG, PER 6 MONTHS
     Route: 058
     Dates: start: 20131003
  2. ELIGARD [Suspect]
     Active Substance: LEUPROLIDE ACETATE
     Dosage: 45 MG, PER 6 MONTHS
     Route: 058
     Dates: start: 20150327
  3. ELIGARD [Suspect]
     Active Substance: LEUPROLIDE ACETATE
     Dosage: 45 MG, PER 6 MONTHS
     Route: 058
     Dates: start: 20150917

REACTIONS (4)
  - Hospitalisation [Unknown]
  - Syncope [Recovering/Resolving]
  - Fall [Unknown]
  - Skull fracture [Unknown]

NARRATIVE: CASE EVENT DATE: 201507
